FAERS Safety Report 5127465-4 (Version None)
Quarter: 2006Q4

REPORT INFORMATION
  Report Type: 
  Country: None (occurrence: None)
  Receive Date: 20061010
  Receipt Date: 20060925
  Transmission Date: 20070319
  Serious: Yes (Other)
  Sender: FDA-Public Use
  Company Number: 2006115363

PATIENT
  Age: 22 Year
  Sex: Male

DRUGS (2)
  1. VIAGRA [Suspect]
     Indication: ERECTILE DYSFUNCTION
     Dosage: 100 MG (100 MG, AS NECESSARY); ORAL
     Route: 048
     Dates: start: 20030101
  2. ENALAPRIL MALEATE [Concomitant]

REACTIONS (1)
  - DRUG DEPENDENCE [None]
